FAERS Safety Report 9399854 (Version 1)
Quarter: 2013Q3

REPORT INFORMATION
  Report Type: Report from Study
  Country: US (occurrence: US)
  Receive Date: 20130715
  Receipt Date: 20130715
  Transmission Date: 20140515
  Serious: Yes (Hospitalization, Other)
  Sender: FDA-Public Use
  Company Number: US-ROCHE-1246312

PATIENT
  Sex: Female
  Weight: 52.3 kg

DRUGS (3)
  1. TOCILIZUMAB [Suspect]
     Indication: RHEUMATOID ARTHRITIS
     Route: 042
     Dates: start: 20130211
  2. METHOTREXATE [Concomitant]
     Route: 065
     Dates: start: 20120716
  3. PREDNISONE [Concomitant]
     Route: 065
     Dates: start: 20120401

REACTIONS (3)
  - Pneumonia [Recovering/Resolving]
  - Metabolic encephalopathy [Recovering/Resolving]
  - Bradycardia [Recovering/Resolving]
